FAERS Safety Report 9676023 (Version 2)
Quarter: 2013Q4

REPORT INFORMATION
  Report Type: Report from Study
  Country: US (occurrence: US)
  Receive Date: 20131107
  Receipt Date: 20131113
  Transmission Date: 20140711
  Serious: Yes (Hospitalization, Other)
  Sender: FDA-Public Use
  Company Number: PHEH2013US023238

PATIENT
  Age: 87 Year
  Sex: Female
  Weight: 61.22 kg

DRUGS (4)
  1. GLEEVEC [Suspect]
     Dosage: 100 MG, QD
     Route: 048
  2. ALIGN [Concomitant]
     Dosage: UNK UKN, DAILY
     Route: 048
  3. ASPIRIN [Concomitant]
     Dosage: UNK UKN, DAILY
     Route: 048
  4. VITAMIN D3 [Concomitant]
     Dosage: UNK UKN, DAILY
     Route: 048

REACTIONS (3)
  - Spinal compression fracture [Recovering/Resolving]
  - Back pain [Unknown]
  - Diarrhoea [Unknown]
